FAERS Safety Report 11694780 (Version 1)
Quarter: 2015Q4

REPORT INFORMATION
  Report Type: Spontaneous
  Country: US (occurrence: US)
  Receive Date: 20151103
  Receipt Date: 20151103
  Transmission Date: 20160304
  Serious: No
  Sender: FDA-Public Use
  Company Number: US-BAUSCH-2015ST000152

PATIENT
  Age: 48 Year
  Sex: Female
  Weight: 62.59 kg

DRUGS (2)
  1. LOPERAMIDE [Concomitant]
     Active Substance: LOPERAMIDE
     Indication: DIARRHOEA
     Dosage: UNK, AS NEEDED
     Route: 048
  2. UCERIS [Suspect]
     Active Substance: BUDESONIDE
     Indication: COLITIS MICROSCOPIC
     Dosage: 9 MG, ONCE DAILY
     Route: 048
     Dates: start: 20150703

REACTIONS (3)
  - Abdominal distension [Unknown]
  - Metrorrhagia [Unknown]
  - Headache [Unknown]

NARRATIVE: CASE EVENT DATE: 20150706
